FAERS Safety Report 5175910-0 (Version None)
Quarter: 2006Q4

REPORT INFORMATION
  Report Type: 
  Country: None (occurrence: None)
  Receive Date: 20061215
  Receipt Date: 20061213
  Transmission Date: 20070319
  Serious: Yes (Other)
  Sender: FDA-Public Use
  Company Number: DE-GLAXOSMITHKLINE-D0051781A

PATIENT
  Age: 39 Year
  Sex: Female
  Weight: 65 kg

DRUGS (4)
  1. SEROXAT [Suspect]
     Route: 048
  2. ERGENYL CHRONO [Suspect]
     Route: 048
  3. ALCOHOL [Suspect]
     Route: 048
  4. TAVOR [Suspect]
     Route: 048

REACTIONS (5)
  - DEPRESSED LEVEL OF CONSCIOUSNESS [None]
  - EYELID OEDEMA [None]
  - MIOSIS [None]
  - MYDRIASIS [None]
  - SUICIDE ATTEMPT [None]
